FAERS Safety Report 6575023-7 (Version None)
Quarter: 2010Q1

REPORT INFORMATION
  Report Type: 
  Country: None (occurrence: None)
  Receive Date: 20100209
  Receipt Date: 20100201
  Transmission Date: 20100710
  Serious: Yes (Hospitalization, Other)
  Sender: FDA-Public Use
  Company Number: US-BAYER-200810611BCC

PATIENT
  Age: 60 Year
  Sex: Male
  Weight: 113 kg

DRUGS (12)
  1. ALEVE (CAPLET) [Suspect]
     Indication: ARTHRALGIA
     Dosage: CONSUMER SOMETIMES TOOK 440MG/DAY, SOMETIMES 880MG/DAY AND SOME DAYS HE DID NOT TAKE ANY
     Route: 048
  2. ALEVE (CAPLET) [Suspect]
     Route: 048
     Dates: end: 20080206
  3. ASPIRIN [Suspect]
     Indication: DRUG USE FOR UNKNOWN INDICATION
     Route: 048
  4. TOPROL-XL [Concomitant]
  5. CITALOPRAM HYDROBROMIDE [Concomitant]
  6. LASIX [Concomitant]
  7. FLOMAX [Concomitant]
  8. ADVAIR DISKUS 100/50 [Concomitant]
  9. CELEXA [Concomitant]
     Route: 065
  10. POPALAW [Concomitant]
     Route: 065
  11. SYNTHROID [Concomitant]
     Route: 065
  12. UNKNOWN VITAMINS [Concomitant]
     Route: 065

REACTIONS (4)
  - CIRCULATORY COLLAPSE [None]
  - CONTUSION [None]
  - PLATELET COUNT DECREASED [None]
  - RESPIRATORY ARREST [None]
